FAERS Safety Report 9457514 (Version 1)
Quarter: 2013Q3

REPORT INFORMATION
  Report Type: Spontaneous
  Country: US (occurrence: None)
  Receive Date: 20130812
  Receipt Date: 20130812
  Transmission Date: 20140515
  Serious: No
  Sender: FDA-Public Use
  Company Number: None

PATIENT
  Age: 66 Year
  Sex: Female
  Weight: 77.11 kg

DRUGS (1)
  1. LEVOXYL [Suspect]
     Indication: PAPILLARY THYROID CANCER
     Dosage: 137/150/175 OVER TIME ONCE DAILY TAKEN BY MOUTH
     Route: 048

REACTIONS (1)
  - Product quality issue [None]
